FAERS Safety Report 4717662-1 (Version None)
Quarter: 2005Q3

REPORT INFORMATION
  Report Type: 
  Country: None (occurrence: None)
  Receive Date: 20050713
  Receipt Date: 20050330
  Transmission Date: 20060218
  Serious: Yes (Other)
  Sender: FDA-Public Use
  Company Number: 346435

PATIENT
  Sex: Male

DRUGS (3)
  1. FUZEON [Suspect]
     Indication: HIV INFECTION
     Dosage: 90 MG 2 PER DAY SUBCUTANEOUS
     Route: 058
     Dates: start: 20020115
  2. KALETRA [Concomitant]
  3. VITAMIN D NOS (VITAMIN D NOS) [Concomitant]

REACTIONS (12)
  - INJECTION SITE HAEMORRHAGE [None]
  - INJECTION SITE IRRITATION [None]
  - INJECTION SITE PRURITUS [None]
  - INJECTION SITE REACTION [None]
  - INJECTION SITE SWELLING [None]
  - INJECTION SITE URTICARIA [None]
  - MENTAL IMPAIRMENT [None]
  - PRURITUS [None]
  - RIB FRACTURE [None]
  - SKIN DISORDER [None]
  - SWELLING [None]
  - VIRAL LOAD INCREASED [None]
